FAERS Safety Report 7016464-3 (Version None)
Quarter: 2010Q3

REPORT INFORMATION
  Report Type: 
  Country: None (occurrence: None)
  Receive Date: 20100923
  Receipt Date: 20100915
  Transmission Date: 20110219
  Serious: Yes (Hospitalization)
  Sender: FDA-Public Use
  Company Number: 2010SP049614

PATIENT
  Age: 12 Year
  Sex: Female

DRUGS (1)
  1. DESLORATADINE [Suspect]
     Indication: SOLAR URTICARIA
     Dosage: ; PO
     Route: 048
     Dates: start: 20100525

REACTIONS (2)
  - CYTOLYTIC HEPATITIS [None]
  - HEPATITIS CHOLESTATIC [None]
